FAERS Safety Report 12115424 (Version 1)
Quarter: 2016Q1

REPORT INFORMATION
  Report Type: Spontaneous
  Country: JP (occurrence: JP)
  Receive Date: 20160225
  Receipt Date: 20160225
  Transmission Date: 20160526
  Serious: Yes (Other)
  Sender: FDA-Public Use
  Company Number: JP-PFIZER INC-2016104621

PATIENT
  Age: 9 Decade
  Sex: Male

DRUGS (1)
  1. SUTENT [Suspect]
     Active Substance: SUNITINIB MALATE
     Indication: RENAL CELL CARCINOMA
     Dosage: 37.5 MG, DAILY ON A 4-WEEK-ON, 2-WEEK-OFF SCHEDULE
     Route: 048

REACTIONS (2)
  - Liver disorder [Unknown]
  - Bone marrow failure [Unknown]
